FAERS Safety Report 14752759 (Version 4)
Quarter: 2019Q3

REPORT INFORMATION
  Report Type: Spontaneous
  Country: US (occurrence: US)
  Receive Date: 20180412
  Receipt Date: 20190809
  Transmission Date: 20191004
  Serious: Yes (Hospitalization, Other)
  Sender: FDA-Public Use
  Company Number: PHEH2018US012563

PATIENT
  Age: 1 Year
  Sex: Female
  Weight: 8.2 kg

DRUGS (7)
  1. ACYCLOVIR. [Concomitant]
     Active Substance: ACYCLOVIR
     Indication: PROPHYLAXIS
     Dosage: 240 UG, BID
     Route: 048
     Dates: start: 20180403, end: 20180406
  2. OXYCODONE [Concomitant]
     Active Substance: OXYCODONE
     Indication: PAIN
     Dosage: 07 MG, EVERY 6 HOURS AS NEEDED
     Route: 048
     Dates: start: 20180403, end: 20180404
  3. ENOXAPARIN [Concomitant]
     Active Substance: ENOXAPARIN
     Indication: THROMBOSIS PROPHYLAXIS
     Dosage: 10 MG, QD
     Route: 058
     Dates: start: 20180403, end: 20180405
  4. KYMRIAH [Suspect]
     Active Substance: TISAGENLECLEUCEL
     Indication: ACUTE LYMPHOCYTIC LEUKAEMIA RECURRENT
     Dosage: UNK UNK, ONCE/SINGLE
     Route: 042
     Dates: start: 20180402
  5. ZANTAC [Concomitant]
     Active Substance: RANITIDINE HYDROCHLORIDE
     Indication: GASTRITIS PROPHYLAXIS
     Dosage: 30 MG, BID
     Route: 048
     Dates: start: 20180403, end: 20180405
  6. CEFEPIME [Concomitant]
     Active Substance: CEFEPIME HYDROCHLORIDE
     Indication: INFECTION
     Dosage: 390 UG, UNK
     Route: 042
     Dates: start: 20180403, end: 20180406
  7. ZOFRAN [Concomitant]
     Active Substance: ONDANSETRON HYDROCHLORIDE
     Indication: NAUSEA
     Dosage: 1 MG, PRN
     Route: 048
     Dates: start: 20180403, end: 20180403

REACTIONS (10)
  - Tachycardia [Unknown]
  - Leukopenia [Unknown]
  - Pyrexia [Recovered/Resolved]
  - Thrombocytosis [Unknown]
  - Lymphopenia [Unknown]
  - Cytokine release syndrome [Recovered/Resolved]
  - Febrile neutropenia [Recovering/Resolving]
  - Pancytopenia [Unknown]
  - Thrombocytopenia [Unknown]
  - Anaemia [Unknown]

NARRATIVE: CASE EVENT DATE: 20180402
